FAERS Safety Report 24127852 (Version 1)
Quarter: 2024Q3

REPORT INFORMATION
  Report Type: Spontaneous
  Country: US (occurrence: US)
  Receive Date: 20240723
  Receipt Date: 20240723
  Transmission Date: 20241017
  Serious: No
  Sender: GILEAD
  Company Number: US-GILEAD-2024-0681542

PATIENT
  Age: 61 Year
  Sex: Male

DRUGS (1)
  1. LENACAPAVIR [Suspect]
     Active Substance: LENACAPAVIR
     Indication: HIV infection
     Dosage: 927MG UNDER THE SKIN IN 2 SEPARATE SITES EVERY 6 MONTHS
     Route: 058
     Dates: start: 202308

REACTIONS (1)
  - Injection site nodule [Unknown]
